FAERS Safety Report 24434015 (Version 1)
Quarter: 2024Q4

REPORT INFORMATION
  Report Type: Report from Study
  Country: CA (occurrence: CA)
  Receive Date: 20241014
  Receipt Date: 20241014
  Transmission Date: 20250115
  Serious: Yes (Other)
  Sender: GLAXOSMITHKLINE
  Company Number: CA-GLAXOSMITHKLINE INC-CA2024123769

PATIENT

DRUGS (1)
  1. BELIMUMAB [Suspect]
     Active Substance: BELIMUMAB
     Indication: Systemic lupus erythematosus
     Dosage: 200 MG, WE
     Dates: start: 20190205

REACTIONS (5)
  - Systemic lupus erythematosus [Recovering/Resolving]
  - Endodontic procedure [Recovered/Resolved]
  - Musculoskeletal stiffness [Recovering/Resolving]
  - Scab [Recovering/Resolving]
  - Injection site pain [Not Recovered/Not Resolved]
